FAERS Safety Report 8922447 (Version 4)
Quarter: 2013Q1

REPORT INFORMATION
  Report Type: Report from Study
  Country: US (occurrence: US)
  Receive Date: 20121123
  Receipt Date: 20130116
  Transmission Date: 20140127
  Serious: Yes (Hospitalization)
  Sender: FDA-Public Use
  Company Number: US-JNJFOC-20121014758

PATIENT
  Age: 79 Year
  Sex: Male

DRUGS (38)
  1. ABIRATERONE ACETATE [Suspect]
     Route: 048
  2. ABIRATERONE ACETATE [Suspect]
     Indication: PROSTATE CANCER METASTATIC
     Route: 048
     Dates: start: 20091110, end: 20121024
  3. PREDNISONE [Suspect]
     Indication: PROSTATE CANCER METASTATIC
     Route: 048
     Dates: start: 20091110
  4. ZOLEDRONIC ACID [Concomitant]
     Route: 042
     Dates: start: 20090417
  5. LEUPROLIDE ACETATE [Concomitant]
     Route: 030
     Dates: start: 20091110
  6. LEUPROLIDE ACETATE [Concomitant]
     Route: 030
     Dates: start: 20070208
  7. NEXIUM [Concomitant]
     Indication: GASTROOESOPHAGEAL REFLUX DISEASE
     Route: 048
     Dates: start: 20090603
  8. ALLEGRA [Concomitant]
     Indication: MULTIPLE ALLERGIES
     Route: 048
     Dates: start: 200607
  9. TYLENOL [Concomitant]
     Indication: CANCER PAIN
     Route: 048
     Dates: start: 20091208
  10. ASPIRIN [Concomitant]
     Indication: CARDIOVASCULAR EVENT PROPHYLAXIS
     Route: 048
     Dates: start: 20091013
  11. MULTIVITAMINS [Concomitant]
     Indication: SUPPLEMENTATION THERAPY
     Route: 048
     Dates: start: 20100520
  12. COLACE [Concomitant]
     Indication: CONSTIPATION
     Route: 048
     Dates: start: 20100525
  13. SENNA [Concomitant]
     Indication: CONSTIPATION
     Route: 048
     Dates: start: 20100525
  14. MIRALAX [Concomitant]
     Indication: CONSTIPATION
     Route: 048
     Dates: start: 20100920
  15. ARTIFICIAL TEARS NOS [Concomitant]
     Indication: DRY EYE
     Route: 031
     Dates: start: 20081009
  16. EYE OINTMENT (OTC) [Concomitant]
     Indication: DRY EYE
     Route: 031
     Dates: start: 20090402
  17. MACROBID (NITROFURANTOIN) [Concomitant]
     Indication: INFECTION PROPHYLAXIS
     Route: 048
     Dates: start: 20111213
  18. VESICARE [Concomitant]
     Indication: URINARY INCONTINENCE
     Route: 048
     Dates: start: 20110913
  19. LOVENOX [Concomitant]
     Indication: DEEP VEIN THROMBOSIS
     Route: 050
     Dates: start: 20111031
  20. TRICOR [Concomitant]
     Indication: HYPERCHOLESTEROLAEMIA
     Route: 048
     Dates: start: 20110207
  21. CELEXA [Concomitant]
     Indication: DEPRESSION
     Route: 048
     Dates: start: 20111108
  22. AMBIEN [Concomitant]
     Indication: INSOMNIA
     Route: 048
     Dates: start: 20110207
  23. NOVOLOG [Concomitant]
     Indication: DIABETES MELLITUS
     Route: 058
     Dates: start: 20110207
  24. HUMULIN INSULIN [Concomitant]
     Indication: DIABETES MELLITUS
     Route: 058
     Dates: start: 20110207
  25. LOSARTAN [Concomitant]
     Indication: PROTEINURIA
     Route: 048
     Dates: start: 20120216
  26. COREG [Concomitant]
     Indication: HYPERTENSION
     Route: 048
     Dates: start: 20120131
  27. WELCHOL [Concomitant]
     Indication: HYPERCHOLESTEROLAEMIA
     Route: 048
     Dates: start: 20120327
  28. VITAMIN D W/ CALCIUM [Concomitant]
     Indication: SUPPLEMENTATION THERAPY
     Route: 048
     Dates: start: 20110207
  29. VITAMIN D [Concomitant]
     Indication: SUPPLEMENTATION THERAPY
     Route: 048
     Dates: start: 20111108
  30. EZETIMIBE [Concomitant]
     Indication: HYPERCHOLESTEROLAEMIA
     Route: 048
     Dates: start: 20120515
  31. FUROSEMIDE [Concomitant]
     Indication: HYPERTENSION
     Route: 048
     Dates: start: 20120515
  32. POTASSIUM CHLORIDE [Concomitant]
     Indication: HYPOKALAEMIA
     Route: 048
     Dates: start: 20120515
  33. TRIAMTERENE [Concomitant]
     Indication: HYPERTENSION
     Route: 048
     Dates: start: 20101012
  34. MORPHINE [Concomitant]
     Indication: PAIN IN EXTREMITY
     Route: 048
     Dates: start: 20120911
  35. OXYCODONE [Concomitant]
     Indication: PAIN IN EXTREMITY
     Route: 048
     Dates: start: 20120814, end: 20121113
  36. COMPAZINE [Concomitant]
     Indication: VOMITING
     Route: 048
     Dates: start: 20120911, end: 20120928
  37. COMPAZINE [Concomitant]
     Indication: NAUSEA
     Route: 048
     Dates: start: 20120911, end: 20120928
  38. ALL OTHER THERAPEUTIC PRODUCTS [Concomitant]
     Indication: PAIN IN EXTREMITY
     Route: 061
     Dates: start: 20121009

REACTIONS (2)
  - Atrial fibrillation [Recovered/Resolved]
  - Bifascicular block [Recovered/Resolved]
